FAERS Safety Report 8219854-6 (Version None)
Quarter: 2012Q1

REPORT INFORMATION
  Report Type: 
  Country: None (occurrence: None)
  Receive Date: 20120319
  Receipt Date: 20120315
  Transmission Date: 20120608
  Serious: Yes (Life-Threatening)
  Sender: FDA-Public Use
  Company Number: SE-ASTRAZENECA-2012SE12552

PATIENT
  Sex: Female

DRUGS (4)
  1. FORMOTEROL FUMARATE [Suspect]
     Indication: ASTHMA
     Route: 055
  2. FORMOTEROL FUMARATE [Suspect]
     Indication: EMPHYSEMA
     Route: 055
  3. PULMICORT [Suspect]
     Indication: EMPHYSEMA
     Route: 055
  4. PULMICORT [Suspect]
     Indication: ASTHMA
     Route: 055

REACTIONS (1)
  - ANAPHYLACTIC SHOCK [None]
